FAERS Safety Report 13910346 (Version 1)
Quarter: 2017Q3

REPORT INFORMATION
  Report Type: Spontaneous
  Country: US (occurrence: None)
  Receive Date: 20170822
  Receipt Date: 20170822
  Transmission Date: 20171127
  Serious: Yes (Hospitalization, Disabling, Other)
  Sender: FDA-Public Use
  Company Number: None

PATIENT
  Age: 59 Year
  Sex: Female
  Weight: 39.92 kg

DRUGS (5)
  1. TUMS [Concomitant]
     Active Substance: CALCIUM CARBONATE
  2. MYLANTA [Concomitant]
     Active Substance: ALUMINUM HYDROXIDE\DIMETHICONE\MAGNESIUM HYDROXIDE
  3. CIPROFLOXACIN HCL (500 MG TAB) [Suspect]
     Active Substance: CIPROFLOXACIN HYDROCHLORIDE
     Indication: GASTROINTESTINAL BACTERIAL INFECTION
     Route: 048
     Dates: start: 20170730, end: 20170804
  4. TYLENOL [Concomitant]
     Active Substance: ACETAMINOPHEN
  5. B-12 INJECTIONS [Concomitant]

REACTIONS (12)
  - Supraventricular tachycardia [None]
  - Chest pain [None]
  - Photophobia [None]
  - Eye pain [None]
  - Visual impairment [None]
  - Sensation of foreign body [None]
  - Blood magnesium decreased [None]
  - Dysphagia [None]
  - Vision blurred [None]
  - Blood potassium decreased [None]
  - Dizziness [None]
  - Dysgeusia [None]

NARRATIVE: CASE EVENT DATE: 20170804
